FAERS Safety Report 9674937 (Version 3)
Quarter: 2013Q4

REPORT INFORMATION
  Report Type: Spontaneous
  Country: US (occurrence: US)
  Receive Date: 20131107
  Receipt Date: 20131202
  Transmission Date: 20140711
  Serious: Yes (Other)
  Sender: FDA-Public Use
  Company Number: US-JNJFOC-20131019273

PATIENT
  Age: 6 Decade
  Sex: Female

DRUGS (3)
  1. NUCYNTA [Suspect]
     Indication: PAIN
     Route: 048
  2. NUCYNTA [Suspect]
     Indication: PAIN
     Route: 048
  3. NUCYNTA [Suspect]
     Indication: PAIN
     Route: 048
     Dates: end: 201310

REACTIONS (2)
  - Paranoia [Unknown]
  - Adverse event [Recovered/Resolved]
